FAERS Safety Report 19999517 (Version 5)
Quarter: 2022Q3

REPORT INFORMATION
  Report Type: Report from Study
  Country: DE (occurrence: DE)
  Receive Date: 20211027
  Receipt Date: 20220802
  Transmission Date: 20221027
  Serious: Yes (Hospitalization, Other)
  Sender: FDA-Public Use
  Company Number: DE-CELLTRION INC.-2021DE014495

PATIENT

DRUGS (10)
  1. RITUXIMAB [Suspect]
     Active Substance: RITUXIMAB
     Indication: Neuromyelitis optica spectrum disorder
     Dosage: EVERY 15 DAYS, SUBSEQUENT DOSES WERE ADMINISTERED ON 18/AUG/2021
     Route: 042
     Dates: start: 20210803
  2. RITUXIMAB [Suspect]
     Active Substance: RITUXIMAB
     Dosage: EVERY 15 DAYS
     Route: 042
     Dates: start: 20210818
  3. PALEXIA [Concomitant]
     Active Substance: TAPENTADOL HYDROCHLORIDE
     Dosage: 50 MG, EVERY 0.5 DAY
  4. ESOMEPRAZOLE [Concomitant]
     Active Substance: ESOMEPRAZOLE
     Dosage: 40 MG EVERY 0.5 DAY
  5. CLONIDINE [Concomitant]
     Active Substance: CLONIDINE
     Dosage: 0.15 MG
  6. ENOXAPARIN SODIUM [Concomitant]
     Active Substance: ENOXAPARIN SODIUM
     Dosage: 40 MG, EVERY 1 DAY
  7. LACTULOSE [Concomitant]
     Active Substance: LACTULOSE
  8. CHOLECALCIFEROL [Concomitant]
     Active Substance: CHOLECALCIFEROL
     Dosage: EVERY 1 WEEK, 20000 UNIT NOT REPORTED
  9. MIRTAZAPINE [Concomitant]
     Active Substance: MIRTAZAPINE
     Dosage: 14 MG, EVERY 1 DAY
  10. PREDNISOLONE [Concomitant]
     Active Substance: PREDNISOLONE
     Dosage: 20 MG

REACTIONS (8)
  - Immunodeficiency [Recovered/Resolved]
  - Cystitis noninfective [Unknown]
  - Pneumonia [Recovered/Resolved]
  - Pseudomonas infection [Not Recovered/Not Resolved]
  - Sepsis [Unknown]
  - Off label use [Unknown]
  - Depressed mood [Not Recovered/Not Resolved]
  - B-lymphocyte count abnormal [Not Recovered/Not Resolved]

NARRATIVE: CASE EVENT DATE: 20210803
